FAERS Safety Report 22300545 (Version 1)
Quarter: 2023Q2

REPORT INFORMATION
  Report Type: Report from Study
  Country: US (occurrence: US)
  Receive Date: 20230509
  Receipt Date: 20230509
  Transmission Date: 20230721
  Serious: Yes (Hospitalization)
  Sender: FDA-Public Use
  Company Number: US-JAZZ PHARMACEUTICALS-2023-US-010085

PATIENT
  Age: 64 Year
  Sex: Male
  Weight: 182 kg

DRUGS (1)
  1. LURBINECTEDIN [Suspect]
     Active Substance: LURBINECTEDIN
     Indication: Oesophageal adenocarcinoma
     Dosage: 3.2 MILLIGRAM/SQ. METER Q3W
     Route: 042
     Dates: start: 20230425, end: 20230425

REACTIONS (5)
  - Acute kidney injury [Unknown]
  - Neutrophil count decreased [Unknown]
  - White blood cell count decreased [Unknown]
  - Platelet count decreased [Unknown]
  - Biliary obstruction [Unknown]

NARRATIVE: CASE EVENT DATE: 20230503
